FAERS Safety Report 8769548 (Version 1)
Quarter: 2012Q4

REPORT INFORMATION
  Report Type: 
  Country: US (occurrence: US)
  Receive Date: 20120905
  Receipt Date: 20120905
  Transmission Date: 20130627
  Serious: No
  Sender: FDA-Public Use
  Company Number: US-COVIDIEN/TYCO HEALTHCARE/MALLINCKRODT-T201201104

PATIENT
  Age: 12 Year
  Sex: Male

DRUGS (1)
  1. MD-GASTROVIEW [Suspect]
     Dosage: 20 ml, single
     Route: 042
     Dates: start: 20120310, end: 20120310

REACTIONS (2)
  - Incorrect route of drug administration [Unknown]
  - Medication error [Recovered/Resolved]
